FAERS Safety Report 7918828-X (Version None)
Quarter: 2011Q4

REPORT INFORMATION
  Report Type: 
  Country: None (occurrence: None)
  Receive Date: 20111116
  Receipt Date: 20111104
  Transmission Date: 20120403
  Serious: Yes (Other)
  Sender: FDA-Public Use
  Company Number: PHHY2011AU097919

PATIENT
  Age: 35 Year
  Sex: Male

DRUGS (3)
  1. TESTOSTERONE [Concomitant]
     Route: 030
  2. TRIIODOTHYRONINE INJECTION [Concomitant]
  3. SPIRONOLACTONE [Suspect]
     Dosage: 100 MG, UNK

REACTIONS (8)
  - HYPERKALAEMIA [None]
  - ASTHENIA [None]
  - DIZZINESS [None]
  - MUSCLE SPASMS [None]
  - RHABDOMYOLYSIS [None]
  - WATER INTOXICATION [None]
  - GAIT DISTURBANCE [None]
  - NAUSEA [None]
